FAERS Safety Report 18753292 (Version 5)
Quarter: 2023Q4

REPORT INFORMATION
  Report Type: Report from Study
  Country: US (occurrence: US)
  Receive Date: 20210118
  Receipt Date: 20231219
  Transmission Date: 20240110
  Serious: Yes (Hospitalization)
  Sender: FDA-Public Use
  Company Number: US-TAKEDA-US202006147

PATIENT
  Sex: Female

DRUGS (2)
  1. HUMAN IMMUNOGLOBULIN G [Suspect]
     Active Substance: HUMAN IMMUNOGLOBULIN G
     Indication: Primary immunodeficiency syndrome
     Dosage: UNK
     Route: 042
  2. HUMAN IMMUNOGLOBULIN G [Suspect]
     Active Substance: HUMAN IMMUNOGLOBULIN G
     Dosage: UNK, 1/WEEK
     Route: 058

REACTIONS (11)
  - Back disorder [Unknown]
  - Impaired healing [Unknown]
  - Abscess [Unknown]
  - Infection [Unknown]
  - Food allergy [Unknown]
  - Inability to afford medication [Unknown]
  - COVID-19 [Unknown]
  - Parosmia [Unknown]
  - Shoulder fracture [Unknown]
  - Cardiac murmur [Unknown]
  - Inappropriate schedule of product administration [Unknown]
